FAERS Safety Report 4570643-3 (Version None)
Quarter: 2005Q1

REPORT INFORMATION
  Report Type: 
  Country: None (occurrence: None)
  Receive Date: 20050202
  Receipt Date: 20050119
  Transmission Date: 20050727
  Serious: Yes (Death, Hospitalization)
  Sender: FDA-Public Use
  Company Number: 2004AP06222

PATIENT
  Age: 78 Year
  Sex: Male

DRUGS (18)
  1. . [Suspect]
     Indication: LUNG NEOPLASM MALIGNANT
     Dosage: 250 MG QOD PO
     Route: 048
     Dates: start: 20041202, end: 20041204
  2. BUFFERIN [Suspect]
     Indication: ANGINA PECTORIS
     Dates: end: 20041208
  3. URSO 250 [Concomitant]
  4. HERBESSER   DELTA [Concomitant]
  5. KADIAN   KNOLL [Concomitant]
  6. CLARITH [Concomitant]
  7. UFT [Concomitant]
  8. JUZENTAIHOTO [Concomitant]
  9. FOIPAN [Concomitant]
  10. FERROMIA [Concomitant]
  11. RELIFEN [Concomitant]
  12. NOVAMIN [Concomitant]
  13. GASTER [Concomitant]
  14. HALCION [Concomitant]
  15. RADIOTHERAPY [Concomitant]
  16. CARBOPLATIN [Concomitant]
  17. VINORELBINE [Concomitant]
  18. CISPLATIN [Concomitant]

REACTIONS (9)
  - C-REACTIVE PROTEIN INCREASED [None]
  - CHILLS [None]
  - DISSEMINATED INTRAVASCULAR COAGULATION [None]
  - HAEMORRHAGIC DIATHESIS [None]
  - HYPOXIA [None]
  - INTERSTITIAL LUNG DISEASE [None]
  - PYREXIA [None]
  - RESPIRATORY ARREST [None]
  - RESTLESSNESS [None]
